FAERS Safety Report 8903590 (Version 6)
Quarter: 2014Q3

REPORT INFORMATION
  Report Type: Spontaneous
  Country: US (occurrence: US)
  Receive Date: 20121113
  Receipt Date: 20140805
  Transmission Date: 20150326
  Serious: Yes (Hospitalization, Disabling, Other)
  Sender: FDA-Public Use
  Company Number: US-009507513-1211USA004965

PATIENT
  Sex: Female
  Weight: 52.15 kg

DRUGS (2)
  1. NUVARING [Suspect]
     Active Substance: ETHINYL ESTRADIOL\ETONOGESTREL
     Dosage: UNK
     Route: 067
     Dates: start: 20061031
  2. NUVARING [Suspect]
     Active Substance: ETHINYL ESTRADIOL\ETONOGESTREL
     Indication: CONTRACEPTION
     Dosage: UNK
     Route: 067
     Dates: start: 2005, end: 201206

REACTIONS (14)
  - Leukocytosis [Recovered/Resolved]
  - Generalised anxiety disorder [Unknown]
  - Pneumonia [Recovered/Resolved]
  - Unintended pregnancy [Unknown]
  - Amenorrhoea [Unknown]
  - Eating disorder [Unknown]
  - Lung infiltration [Recovered/Resolved]
  - Pulmonary embolism [Unknown]
  - Malnutrition [Unknown]
  - Inappropriate schedule of drug administration [Unknown]
  - Abortion spontaneous [Recovered/Resolved]
  - Generalised tonic-clonic seizure [Recovered/Resolved]
  - Deep vein thrombosis [Unknown]
  - Breast reconstruction [Unknown]

NARRATIVE: CASE EVENT DATE: 20061031
